FAERS Safety Report 11096552 (Version 1)
Quarter: 2015Q2

REPORT INFORMATION
  Report Type: Spontaneous
  Country: US (occurrence: None)
  Receive Date: 20150505
  Receipt Date: 20150505
  Transmission Date: 20150821
  Serious: Yes (Life-Threatening, Hospitalization)
  Sender: FDA-Public Use
  Company Number: MAC-15-044

PATIENT
  Age: 85 Year
  Sex: Female

DRUGS (6)
  1. WARFARIN [Concomitant]
     Active Substance: WARFARIN
  2. VALSARTAN. [Concomitant]
     Active Substance: VALSARTAN
  3. SPIRONOLACTONE. [Concomitant]
     Active Substance: SPIRONOLACTONE
  4. SPIRONOLACTONE. [Suspect]
     Active Substance: SPIRONOLACTONE
  5. SOTALOL. [Concomitant]
     Active Substance: SOTALOL
  6. SULFAMETHOXAZOLE AND TRIMETHOPRIM [Suspect]
     Active Substance: SULFAMETHOXAZOLE\TRIMETHOPRIM
     Indication: URINARY TRACT INFECTION

REACTIONS (14)
  - Heart rate decreased [None]
  - Nodal rhythm [None]
  - Haemodialysis [None]
  - Metabolic acidosis [None]
  - Hypovolaemia [None]
  - Diarrhoea [None]
  - Bundle branch block left [None]
  - Electrocardiogram T wave amplitude increased [None]
  - Renal tubular necrosis [None]
  - Asthenia [None]
  - Hypotension [None]
  - Electrocardiogram QRS complex prolonged [None]
  - Hyperkalaemia [None]
  - Acute prerenal failure [None]
